FAERS Safety Report 18351781 (Version 2)
Quarter: 2020Q4

REPORT INFORMATION
  Report Type: Spontaneous
  Country: US (occurrence: US)
  Receive Date: 20201006
  Receipt Date: 20201021
  Transmission Date: 20210114
  Serious: Yes (Hospitalization, Other)
  Sender: FDA-Public Use
  Company Number: US-TEVA-2020-US-1835150

PATIENT
  Age: 27 Year
  Sex: Female
  Weight: 83.9 kg

DRUGS (3)
  1. OLANZAPINE. [Suspect]
     Active Substance: OLANZAPINE
     Indication: MANIA
     Dosage: AS NEEDED (PRO RE NATA DOSES) TOTAL DAILY DOSE, LESS THAN OR EQUAL TO 40 MG. THE DOSE WAS TITRATE...
     Route: 048
  2. LITHIUM. [Interacting]
     Active Substance: LITHIUM
     Indication: MANIA
     Dosage: 600 MILLIGRAM DAILY;
     Route: 048
  3. LITHIUM. [Interacting]
     Active Substance: LITHIUM
     Indication: MANIA
     Dosage: 1500 MILLIGRAM DAILY;
     Route: 048

REACTIONS (7)
  - Oedema [Recovered/Resolved]
  - Weight increased [Recovering/Resolving]
  - Drug interaction [Recovering/Resolving]
  - Pruritus [Unknown]
  - Drug level decreased [Recovering/Resolving]
  - Transaminases increased [Unknown]
  - Erythema [Unknown]
